FAERS Safety Report 6611029-7 (Version None)
Quarter: 2010Q1

REPORT INFORMATION
  Report Type: 
  Country: None (occurrence: None)
  Receive Date: 20100222
  Receipt Date: 20100203
  Transmission Date: 20100710
  Serious: Yes (Other)
  Sender: FDA-Public Use
  Company Number: THQ2010A00299

PATIENT
  Age: 54 Year
  Sex: Female

DRUGS (7)
  1. ACTOS [Suspect]
     Indication: TYPE 2 DIABETES MELLITUS
     Dosage: 30 MG (30 MG, 1 IN 1 D) PER ORAL
     Route: 048
     Dates: start: 20100112, end: 20100119
  2. JANUMET (ANTI-DIABETICS) [Concomitant]
  3. ARIMIDEX [Concomitant]
  4. FELODIPINE [Concomitant]
  5. LIPITOR [Concomitant]
  6. KERLONE [Concomitant]
  7. RAMIPRIL [Concomitant]

REACTIONS (1)
  - HAEMATURIA [None]
